FAERS Safety Report 5132234-5 (Version None)
Quarter: 2006Q4

REPORT INFORMATION
  Report Type: 
  Country: None (occurrence: None)
  Receive Date: 20061017
  Receipt Date: 20061004
  Transmission Date: 20070319
  Serious: No
  Sender: FDA-Public Use
  Company Number: O6H-163-0310573-00

PATIENT
  Age: 27 Year
  Sex: Male

DRUGS (3)
  1. METOCLOPRAMIDE INJECTION (METOCLOPRAMIDE) (METOCLOPROMIDE) [Suspect]
     Indication: ENTERAL NUTRITION
     Dosage: 10 MG, 6 H R, INTRAVENOUS
     Route: 042
  2. FLUIDS [Concomitant]
  3. CISATRACURIUM (CISATRACURIUM) [Concomitant]

REACTIONS (12)
  - ATRIAL FIBRILLATION [None]
  - FLUID OVERLOAD [None]
  - HEART RATE INCREASED [None]
  - HEPATIC ENZYME INCREASED [None]
  - HYPERHIDROSIS [None]
  - METABOLIC ACIDOSIS [None]
  - NEUROLEPTIC MALIGNANT SYNDROME [None]
  - PANCREATITIS [None]
  - PULMONARY OEDEMA [None]
  - RENAL FAILURE [None]
  - SPUTUM CULTURE POSITIVE [None]
  - STREPTOCOCCAL INFECTION [None]
